FAERS Safety Report 9511645 (Version 1)
Quarter: 2013Q3

REPORT INFORMATION
  Report Type: Spontaneous
  Country: US (occurrence: US)
  Receive Date: 20130910
  Receipt Date: 20130910
  Transmission Date: 20140515
  Serious: No
  Sender: FDA-Public Use
  Company Number: US-BAYER-2013-108868

PATIENT
  Sex: Female

DRUGS (3)
  1. ALEVE CAPLET [Suspect]
     Indication: BACK PAIN
     Dosage: DF
  2. MOTRIN [Concomitant]
  3. TYLENOL #3 [Concomitant]
     Dosage: UNK

REACTIONS (1)
  - Drug ineffective [None]
